FAERS Safety Report 18061174 (Version 1)
Quarter: 2020Q3

REPORT INFORMATION
  Report Type: Report from Study
  Country: US (occurrence: US)
  Receive Date: 20200723
  Receipt Date: 20200723
  Transmission Date: 20201103
  Serious: Yes (Hospitalization)
  Sender: FDA-Public Use
  Company Number: US-EISAI MEDICAL RESEARCH-EC-2020-070134

PATIENT
  Age: 76 Year
  Sex: Female

DRUGS (4)
  1. LENVIMA [Suspect]
     Active Substance: LENVATINIB
     Route: 048
     Dates: start: 20200303, end: 20200713
  2. KEYTRUDA [Suspect]
     Active Substance: PEMBROLIZUMAB
     Indication: PRODUCT USED FOR UNKNOWN INDICATION
     Dosage: FREQUENCY AND DOSE UNKNOWN
     Route: 041
     Dates: start: 20200303
  3. TIROSINT [Suspect]
     Active Substance: LEVOTHYROXINE SODIUM
     Indication: PRODUCT USED FOR UNKNOWN INDICATION
     Dosage: DOSE AND FREQUENCY UNKNOWN
     Route: 065
     Dates: start: 2020
  4. LENVIMA [Suspect]
     Active Substance: LENVATINIB
     Indication: ENDOMETRIAL CANCER
     Route: 048
     Dates: start: 20200211, end: 202003

REACTIONS (17)
  - Pruritus [Recovering/Resolving]
  - Erythema [Not Recovered/Not Resolved]
  - Back pain [Not Recovered/Not Resolved]
  - Thrombosis [Not Recovered/Not Resolved]
  - Loss of personal independence in daily activities [Not Recovered/Not Resolved]
  - Flushing [Recovering/Resolving]
  - Flatulence [Recovering/Resolving]
  - Rectal haemorrhage [Recovering/Resolving]
  - Constipation [Recovering/Resolving]
  - Blood pressure increased [Recovering/Resolving]
  - Arthralgia [Not Recovered/Not Resolved]
  - Asthenia [Not Recovered/Not Resolved]
  - Myalgia [Not Recovered/Not Resolved]
  - Fatigue [Not Recovered/Not Resolved]
  - Stress fracture [Not Recovered/Not Resolved]
  - Somnolence [Unknown]
  - Weight decreased [Recovering/Resolving]

NARRATIVE: CASE EVENT DATE: 2020
